FAERS Safety Report 18724510 (Version 1)
Quarter: 2021Q1

REPORT INFORMATION
  Report Type: Spontaneous
  Country: US (occurrence: US)
  Receive Date: 20210111
  Receipt Date: 20210111
  Transmission Date: 20210419
  Serious: Yes (Life-Threatening, Hospitalization)
  Sender: FDA-Public Use
  Company Number: US-MYLANLABS-2021M1000399

PATIENT
  Age: 30 Year
  Sex: Male

DRUGS (1)
  1. METHIMAZOLE. [Suspect]
     Active Substance: METHIMAZOLE
     Indication: BASEDOW^S DISEASE
     Dosage: 30 MILLIGRAM, QD
     Route: 065

REACTIONS (5)
  - Tonsillitis [Recovered/Resolved]
  - Neutropenia [Recovered/Resolved]
  - Cholestasis [Recovered/Resolved]
  - Sepsis [Recovered/Resolved]
  - Agranulocytosis [Recovered/Resolved]
